FAERS Safety Report 8835479 (Version 3)
Quarter: 2012Q4

REPORT INFORMATION
  Report Type: 
  Country: BE (occurrence: BE)
  Receive Date: 20121011
  Receipt Date: 20121123
  Transmission Date: 20130627
  Serious: Yes (Other)
  Sender: FDA-Public Use
  Company Number: PHHY2012BE089652

PATIENT
  Age: 62 Year
  Sex: Female

DRUGS (9)
  1. ACLASTA [Suspect]
     Indication: OSTEOPOROSIS POSTMENOPAUSAL
     Dosage: 5 mg, yearly
     Route: 042
     Dates: start: 20101010
  2. ACLASTA [Suspect]
     Dosage: 5 mg, UNK
     Route: 042
     Dates: start: 20111020
  3. CORTICOSTEROIDS [Concomitant]
  4. SYMBICORT [Concomitant]
  5. DUOVENT [Concomitant]
  6. OXYGEN THERAPY [Concomitant]
  7. PLAVIX [Concomitant]
  8. CALCIUM [Concomitant]
  9. VITAMIN D [Concomitant]

REACTIONS (7)
  - Secondary sequestrum [Unknown]
  - Tenderness [Unknown]
  - Osteonecrosis of jaw [Unknown]
  - Lymphadenopathy [Unknown]
  - Pain in jaw [Unknown]
  - Exposed bone in jaw [Unknown]
  - Aphagia [Unknown]
